FAERS Safety Report 15497358 (Version 1)
Quarter: 2018Q4

REPORT INFORMATION
  Report Type: Spontaneous
  Country: US (occurrence: US)
  Receive Date: 20181015
  Receipt Date: 20181015
  Transmission Date: 20190205
  Serious: No
  Sender: FDA-Public Use
  Company Number: US-ASTRAZENECA-2018SF30760

PATIENT

DRUGS (1)
  1. RHINOCORT [Suspect]
     Active Substance: BUDESONIDE
     Dosage: UNKNOWN DOSE
     Route: 045

REACTIONS (1)
  - Dyspnoea [Unknown]
